FAERS Safety Report 9741851 (Version 2)
Quarter: 2013Q4

REPORT INFORMATION
  Report Type: Report from Study
  Country: CZ (occurrence: CZ)
  Receive Date: 20131210
  Receipt Date: 20131213
  Transmission Date: 20140711
  Serious: Yes (Death)
  Sender: FDA-Public Use
  Company Number: PHHY2013CZ143302

PATIENT
  Sex: Male

DRUGS (1)
  1. IMATINIB [Suspect]
     Dosage: UNK UKN, UNK
     Dates: start: 20070915, end: 20080110

REACTIONS (1)
  - Death [Fatal]
